FAERS Safety Report 23601832 (Version 2)
Quarter: 2024Q2

REPORT INFORMATION
  Report Type: Spontaneous
  Country: US (occurrence: US)
  Receive Date: 20240306
  Receipt Date: 20240514
  Transmission Date: 20240715
  Serious: Yes (Other)
  Sender: FDA-Public Use
  Company Number: US-JNJFOC-20240275003

PATIENT
  Age: 37 Year
  Sex: Female
  Weight: 80.812 kg

DRUGS (17)
  1. SIMPONI ARIA [Suspect]
     Active Substance: GOLIMUMAB
     Indication: Ankylosing spondylitis
     Route: 041
  2. ALPRAZOLAM [Concomitant]
     Active Substance: ALPRAZOLAM
     Indication: Anxiety
     Dosage: TAKE 1 TABLET BY MOUTH 3 (THREE) TIMES DAILY
     Route: 048
  3. ARIPIPRAZOLE [Concomitant]
     Active Substance: ARIPIPRAZOLE
     Route: 048
  4. CELECOXIB [Concomitant]
     Active Substance: CELECOXIB
     Route: 048
  5. CLOTRIMAZOLE [Concomitant]
     Active Substance: CLOTRIMAZOLE
     Route: 061
  6. CYANOCOBALAMIN [Concomitant]
     Active Substance: CYANOCOBALAMIN
     Dosage: 1,000 MCG/ML
  7. DEXTROAMPHETAMINE [Concomitant]
     Active Substance: DEXTROAMPHETAMINE
     Route: 048
  8. ERGOCALCIFEROL [Concomitant]
     Active Substance: ERGOCALCIFEROL
     Route: 048
  9. NUVARING [Concomitant]
     Active Substance: ETHINYL ESTRADIOL\ETONOGESTREL
     Dosage: 0.12-0.015 MG, 1 RING LEAVE IN PLACE FOR 3 WEEKS, REMOVE, AND REPLACE WITH A NEW RING AFTER 7 DAY BR
  10. FLUOXETINE [Concomitant]
     Active Substance: FLUOXETINE HYDROCHLORIDE
     Route: 048
  11. OXYCODONE AND ACETAMINOPHEN [Concomitant]
     Active Substance: ACETAMINOPHEN\OXYCODONE HYDROCHLORIDE
     Dosage: 7.5-325 MG
     Route: 048
  12. SULFASALAZINE [Concomitant]
     Active Substance: SULFASALAZINE
     Route: 048
  13. ZALEPLON [Concomitant]
     Active Substance: ZALEPLON
     Dosage: TAKE 1 CAPSULE BY MOUTH AT BEDTIME
     Route: 048
  14. DAYSEE [Concomitant]
     Active Substance: ETHINYL ESTRADIOL\LEVONORGESTREL
     Dosage: 0.15 MG-30 MCG (84)/10 MCG, 1 TABLET TAKEN BY MOUTH AT THE SAME TIME EACH DAY, PREFERABLY EITHER AFT
  15. METHYLPHENIDATE HYDROCHLORIDE [Concomitant]
     Active Substance: METHYLPHENIDATE HYDROCHLORIDE
     Route: 048
  16. NYSTATIN [Concomitant]
     Active Substance: NYSTATIN
     Route: 061
  17. NYSTATIN [Concomitant]
     Active Substance: NYSTATIN
     Route: 061

REACTIONS (12)
  - Upper motor neurone lesion [Unknown]
  - Hemiparesis [Unknown]
  - Back pain [Unknown]
  - Confusional state [Unknown]
  - Dizziness [Unknown]
  - Headache [Unknown]
  - Nausea [Unknown]
  - Mental status changes [Unknown]
  - Sensory loss [Unknown]
  - Amnesia [Unknown]
  - Presyncope [Unknown]
  - Visual impairment [Unknown]
